FAERS Safety Report 16727197 (Version 1)
Quarter: 2019Q3

REPORT INFORMATION
  Report Type: Spontaneous
  Country: US (occurrence: US)
  Receive Date: 20190822
  Receipt Date: 20190822
  Transmission Date: 20191005
  Serious: No
  Sender: FDA-Public Use
  Company Number: US-PAREXEL-2018US007858

PATIENT

DRUGS (11)
  1. ELIGARD [Suspect]
     Active Substance: LEUPROLIDE ACETATE
     Indication: PROSTATE CANCER
     Dosage: 22.5 MG, 3 MONTH DOSE
     Route: 058
     Dates: start: 2017
  2. FLOMAX [Concomitant]
     Active Substance: TAMSULOSIN HYDROCHLORIDE
  3. CYMBALTA [Concomitant]
     Active Substance: DULOXETINE HYDROCHLORIDE
  4. ZETIA [Concomitant]
     Active Substance: EZETIMIBE
  5. ASPIRIN                            /00002701/ [Concomitant]
     Active Substance: ASPIRIN
  6. PROTONIX                           /00661201/ [Concomitant]
     Active Substance: OMEPRAZOLE
  7. LYRICA [Concomitant]
     Active Substance: PREGABALIN
  8. LIPITOR [Concomitant]
     Active Substance: ATORVASTATIN CALCIUM
  9. METOPROLOL. [Concomitant]
     Active Substance: METOPROLOL
  10. VALACYCLOVIR                       /01269701/ [Concomitant]
     Active Substance: VALACYCLOVIR HYDROCHLORIDE
  11. HYDROCHLOROTHIAZIDE. [Concomitant]
     Active Substance: HYDROCHLOROTHIAZIDE

REACTIONS (3)
  - Injection site reaction [Recovered/Resolved]
  - Injection site induration [Recovered/Resolved]
  - Hepatic enzyme increased [Unknown]
